FAERS Safety Report 8005290-4 (Version None)
Quarter: 2011Q4

REPORT INFORMATION
  Report Type: 
  Country: None (occurrence: None)
  Receive Date: 20111223
  Receipt Date: 20111212
  Transmission Date: 20120403
  Serious: Yes (Hospitalization)
  Sender: FDA-Public Use
  Company Number: DE-SANOFI-AVENTIS-2011SA083159

PATIENT
  Age: 44 Year
  Sex: Female
  Weight: 67 kg

DRUGS (3)
  1. DOCETAXEL [Suspect]
     Route: 042
     Dates: start: 20110906, end: 20110927
  2. XELODA [Suspect]
     Dosage: DOSE LEVEL: 825 MG/M2 FROM DAYS 1-14
     Route: 048
     Dates: start: 20110906, end: 20111004
  3. METOCLOPRAMIDE [Concomitant]
     Indication: NAUSEA
     Route: 048
     Dates: start: 20110927, end: 20111004

REACTIONS (1)
  - WOUND COMPLICATION [None]
